FAERS Safety Report 6397190-0 (Version None)
Quarter: 2009Q3

REPORT INFORMATION
  Report Type: 
  Country: None (occurrence: None)
  Receive Date: 20090929
  Receipt Date: 20090916
  Transmission Date: 20100115
  Serious: Yes (Hospitalization)
  Sender: FDA-Public Use
  Company Number: THYM-1001177

PATIENT
  Age: 64 Year
  Sex: Male

DRUGS (33)
  1. THYMOGLOBULIN [Suspect]
     Indication: BONE MARROW TRANSPLANT
     Dosage: 1.5 MG/KG, QD, INTRAVENOUS
     Route: 042
     Dates: start: 20090803, end: 20090807
  2. THYMOGLOBULIN [Suspect]
  3. THYMOGLOBULIN [Suspect]
  4. CLOFARABINE (CLOFARABINE) [Concomitant]
  5. ACETAMINOPHEN [Concomitant]
  6. DIPHENHYDRAMINE HCL [Concomitant]
  7. MEPERIDINE HCL [Concomitant]
  8. ALUMINUM HYDROXIDE SUSPENSION [Concomitant]
  9. LOPERAMIDE (LOPERAMIDE) [Concomitant]
  10. MULTIVITAMIN [Concomitant]
  11. FOLIC ACID [Concomitant]
  12. ONDANSETRON [Concomitant]
  13. ACYCLOVIR [Concomitant]
  14. FLUCONAZOLE [Concomitant]
  15. HYDROCERIN (PARAFFIN, LIQUID, WOOL ALCOHOLS) [Concomitant]
  16. FILGRASTIM (FILGRASTIM) [Concomitant]
  17. CAPHOSOL [Concomitant]
  18. MYCOPHENOLATE MOFETIL [Concomitant]
  19. LORAZEPAM [Concomitant]
  20. SENNA (SENNA ALEXANDRINA) [Concomitant]
  21. LEVOTHYROXINE SODIUM [Concomitant]
  22. TIMOLOL MALEATE [Concomitant]
  23. LIDOCAINE VISCOUS (LIIDOCAINE HYDROCHLORIDE) [Concomitant]
  24. OXYCODONE HCL [Concomitant]
  25. GABAPENTIN [Concomitant]
  26. CEFEPIME [Concomitant]
  27. CYCLOSPORINE [Concomitant]
  28. DOCUSATE SODIUM (DOCUSATE SODIUM) [Concomitant]
  29. LIDOCAINE [Concomitant]
  30. VANCOMYCIN [Concomitant]
  31. OXYMETAZOLINE (OXYMETAZOLINE) [Concomitant]
  32. TRIMETHOPRIM + SULFAMETHOXAZOLE [Concomitant]
  33. LEVOFLOXACIN [Concomitant]

REACTIONS (6)
  - ACUTE GRAFT VERSUS HOST DISEASE IN SKIN [None]
  - BLOOD CREATININE INCREASED [None]
  - CYTOMEGALOVIRUS VIRAEMIA [None]
  - MALIGNANT NEOPLASM PROGRESSION [None]
  - MULTIPLE MYELOMA [None]
  - PLASMACYTOMA [None]
